FAERS Safety Report 23038360 (Version 1)
Quarter: 2023Q4

REPORT INFORMATION
  Report Type: Other
  Country: None (occurrence: DK)
  Receive Date: 20231006
  Receipt Date: 20231006
  Transmission Date: 20240110
  Serious: Yes (Other)
  Sender: FDA-Public Use
  Company Number: DK-B.Braun Medical Inc.-2146779

PATIENT
  Age: 34 Year
  Sex: Female

DRUGS (2)
  1. ACETAMINOPHEN [Suspect]
     Active Substance: ACETAMINOPHEN
     Indication: Pyrexia
  2. Antibiotics  (not otherwise specified) [Concomitant]

REACTIONS (2)
  - Drug ineffective [None]
  - Maternal exposure during pregnancy [None]
